FAERS Safety Report 11264994 (Version 1)
Quarter: 2015Q3

REPORT INFORMATION
  Report Type: Spontaneous
  Country: CH (occurrence: CH)
  Receive Date: 20150713
  Receipt Date: 20150713
  Transmission Date: 20151125
  Serious: Yes (Other)
  Sender: FDA-Public Use
  Company Number: CH-PFIZER INC-2015226582

PATIENT
  Age: 44 Year
  Sex: Male

DRUGS (2)
  1. DENOSUMAB [Suspect]
     Active Substance: DENOSUMAB
     Indication: RENAL CELL CARCINOMA
     Dosage: UNK
     Dates: start: 20131016
  2. SUNITINIB MALATE. [Suspect]
     Active Substance: SUNITINIB MALATE
     Indication: RENAL CELL CARCINOMA
     Dosage: 50 MG, 4/2 CYCLE
     Dates: start: 20131016

REACTIONS (3)
  - Renal cell carcinoma [Unknown]
  - Disease progression [Unknown]
  - Fracture [Unknown]

NARRATIVE: CASE EVENT DATE: 20131211
